FAERS Safety Report 5112802-7 (Version None)
Quarter: 2006Q3

REPORT INFORMATION
  Report Type: 
  Country: None (occurrence: None)
  Receive Date: 20060922
  Receipt Date: 20060720
  Transmission Date: 20061208
  Serious: Yes (Life-Threatening, Hospitalization, Disabling)
  Sender: FDA-Public Use
  Company Number: US-MERCK-0607USA04280

PATIENT
  Sex: Female
  Weight: 105 kg

DRUGS (7)
  1. VYTORIN [Suspect]
     Indication: LIPIDS INCREASED
     Route: 048
     Dates: start: 20060101, end: 20060716
  2. CAPTOPRIL MSD [Concomitant]
     Route: 048
  3. ACTOS [Concomitant]
     Route: 048
  4. GLYBURIDE [Concomitant]
     Route: 048
  5. GLYBURIDE [Concomitant]
     Route: 048
  6. MICARDIS [Concomitant]
     Route: 048
  7. ISONIAZID [Concomitant]
     Route: 048

REACTIONS (3)
  - HEPATITIS ACUTE [None]
  - RENAL IMPAIRMENT [None]
  - RHABDOMYOLYSIS [None]
